FAERS Safety Report 26057942 (Version 1)
Quarter: 2025Q4

REPORT INFORMATION
  Report Type: Spontaneous
  Country: EU (occurrence: EU)
  Receive Date: 20251118
  Receipt Date: 20251118
  Transmission Date: 20260117
  Serious: Yes (Death, Hospitalization, Other)
  Sender: Steriscience PTE
  Company Number: EU-STERISCIENCE B.V.-2025-ST-001619

PATIENT
  Age: 32 Year
  Sex: Male

DRUGS (5)
  1. METHYLENE BLUE [Suspect]
     Active Substance: METHYLENE BLUE
     Indication: Methaemoglobinaemia
     Dosage: 300 MILLIGRAM, INFUSION
     Route: 065
  2. LORAZEPAM [Concomitant]
     Active Substance: LORAZEPAM
     Indication: Suicide attempt
     Dosage: UNK
     Route: 048
  3. SODIUM NITRITE [Concomitant]
     Active Substance: SODIUM NITRITE
     Indication: Completed suicide
     Dosage: 100 GRAM
     Route: 048
  4. EPINEPHRINE [Concomitant]
     Active Substance: EPINEPHRINE
     Indication: Hypotension
     Dosage: FIVE INJECTIONS
     Route: 065
  5. EPINEPHRINE [Concomitant]
     Active Substance: EPINEPHRINE
     Indication: Bradycardia

REACTIONS (2)
  - Cardiac arrest [Fatal]
  - Drug ineffective [Fatal]
